FAERS Safety Report 17907626 (Version 1)
Quarter: 2020Q2

REPORT INFORMATION
  Report Type: Spontaneous
  Country: DE (occurrence: DE)
  Receive Date: 20200617
  Receipt Date: 20200617
  Transmission Date: 20200714
  Serious: Yes (Life-Threatening, Hospitalization)
  Sender: FDA-Public Use
  Company Number: DE-PFIZER INC-2020232570

PATIENT
  Age: 84 Year
  Sex: Female

DRUGS (13)
  1. METFORMIN [Concomitant]
     Active Substance: METFORMIN HYDROCHLORIDE
     Dosage: 500 MG, 1-0-1-0, TABLETS
     Route: 048
  2. CALCIUM SANDOZ D [Concomitant]
     Dosage: CALCIUM-SANDOZ D OSTEO 500MG/1000IU, 0-0-1-0, EFFERVESCENT TABLETS
     Route: 048
  3. ACETYLSALICYLSAEURE [Suspect]
     Active Substance: ASPIRIN
     Dosage: 100 MG, 0-1-0-0, TABLETS
     Route: 048
  4. PREDNISOLON [PREDNISOLONE] [Suspect]
     Active Substance: PREDNISOLONE
     Dosage: 1 MG, 1-0-0-0, TABLETS
     Route: 048
  5. SIMVASTATIN. [Concomitant]
     Active Substance: SIMVASTATIN
     Dosage: 20 MG, 0-0-1-0, TABLETS
     Route: 048
  6. METHOTREXATE SODIUM. [Suspect]
     Active Substance: METHOTREXATE SODIUM
     Dosage: 10 MG / WEEK, MONDAY, TABLETS
     Route: 048
  7. OMEPRAZOL [Suspect]
     Active Substance: OMEPRAZOLE
     Dosage: 20 MG, 0-0-1-0, CAPSULES
     Route: 048
  8. COLECALCIFEROL [Concomitant]
     Active Substance: CHOLECALCIFEROL
     Dosage: 25 ?G, 1-0-0-0, TABLETS
     Route: 048
  9. MOXONIDIN [Concomitant]
     Active Substance: MOXONIDINE
     Dosage: 0.2 MG, 1-0-0-0, TABLETS
     Route: 048
  10. RAMIPRIL. [Concomitant]
     Active Substance: RAMIPRIL
     Dosage: 5 MG, 1-0-1-0, TABLETS
     Route: 048
  11. AMLODIPINE [Concomitant]
     Active Substance: AMLODIPINE BESYLATE
     Dosage: 5 MG, 0-0-1-0, TABLETS
     Route: 048
  12. FOLSAEURE [Concomitant]
     Active Substance: FOLIC ACID
     Dosage: 5 MG / WEEK, TUESDAYS, TABLETS
     Route: 048
  13. METOPROLOL. [Concomitant]
     Active Substance: METOPROLOL
     Dosage: 50 MG, 1-0-0-0, RETARD-TABLETS
     Route: 048

REACTIONS (5)
  - Traumatic haemorrhage [Unknown]
  - Haematoma [Unknown]
  - Fall [Unknown]
  - Fracture [Unknown]
  - General physical health deterioration [Unknown]
